FAERS Safety Report 19288160 (Version 2)
Quarter: 2021Q2

REPORT INFORMATION
  Report Type: Spontaneous
  Country: ES (occurrence: ES)
  Receive Date: 20210521
  Receipt Date: 20210524
  Transmission Date: 20210717
  Serious: Yes (Hospitalization, Other)
  Sender: FDA-Public Use
  Company Number: ES-BAYER-2021-140710

PATIENT
  Age: 63 Year
  Sex: Male

DRUGS (7)
  1. LACTULOSE. [Concomitant]
     Active Substance: LACTULOSE
  2. REGORAFENIB. [Suspect]
     Active Substance: REGORAFENIB
     Indication: HEPATOCELLULAR CARCINOMA
     Dosage: DAILY DOSE 160 MG
     Dates: start: 20180406
  3. SORAFENIB (RAF KINASE INHIBITOR) [Suspect]
     Active Substance: SORAFENIB
     Indication: HEPATOCELLULAR CARCINOMA
     Dosage: 400MG/12HOUR
     Dates: start: 20170908
  4. ALDACTONE [Concomitant]
     Active Substance: SPIRONOLACTONE
     Dosage: 100 MG
  5. ENALAPRIL [Concomitant]
     Active Substance: ENALAPRIL
     Dosage: 20 MG
  6. AMLODIPINE [Concomitant]
     Active Substance: AMLODIPINE BESYLATE
     Dosage: 10 MG
  7. RIFAXIMIN. [Concomitant]
     Active Substance: RIFAXIMIN

REACTIONS (10)
  - Hepatocellular carcinoma [None]
  - Hepatocellular carcinoma [None]
  - Fatigue [None]
  - Haemoperitoneum [None]
  - Hepatic encephalopathy [Recovered/Resolved]
  - Palmar-plantar erythrodysaesthesia syndrome [None]
  - Oedema [None]
  - Tumour rupture [None]
  - Hepatic encephalopathy [None]
  - Waist circumference increased [None]

NARRATIVE: CASE EVENT DATE: 20171023
